FAERS Safety Report 14745638 (Version 3)
Quarter: 2021Q2

REPORT INFORMATION
  Report Type: Spontaneous
  Country: US (occurrence: US)
  Receive Date: 20180411
  Receipt Date: 20210413
  Transmission Date: 20210716
  Serious: Yes (Life-Threatening)
  Sender: FDA-Public Use
  Company Number: US-ALLERGAN-1753292US

PATIENT
  Sex: Female
  Weight: 52.16 kg

DRUGS (11)
  1. LUMIGAN [Suspect]
     Active Substance: BIMATOPROST
     Indication: NORMAL TENSION GLAUCOMA
     Dosage: 1 X DAY
     Route: 047
     Dates: start: 201710
  2. ALPHAGAN P [Concomitant]
     Active Substance: BRIMONIDINE TARTRATE
     Indication: GLAUCOMA
     Dosage: UNK
     Route: 047
     Dates: start: 20181020
  3. LEVOTHYROXINE. [Concomitant]
     Active Substance: LEVOTHYROXINE
     Dosage: 112 ?G, QD
     Route: 048
     Dates: start: 2012
  4. PILOCARPINE HYDROCHLORIDE. [Suspect]
     Active Substance: PILOCARPINE HYDROCHLORIDE
     Indication: NORMAL TENSION GLAUCOMA
     Dosage: UNK
     Route: 047
     Dates: start: 2017
  5. LEVOTHYROXINE. [Concomitant]
     Active Substance: LEVOTHYROXINE
     Dosage: 50 ?G, UNK
     Route: 048
  6. MANY DIFFERENT EYE DROPS [Concomitant]
     Indication: GLAUCOMA
  7. XALATAN [Concomitant]
     Active Substance: LATANOPROST
     Indication: GLAUCOMA
     Dosage: 2 GTT, QPM
     Route: 047
     Dates: start: 20180405
  8. HOMEOPATHIC MEDICATIONS [Concomitant]
     Active Substance: UNSPECIFIED INGREDIENT
     Indication: ILLNESS
  9. LEVOTHYROXINE. [Concomitant]
     Active Substance: LEVOTHYROXINE
     Indication: THYROID DISORDER
     Dosage: 100 ?G, QD
     Route: 048
  10. LEVOTHYROXINE. [Concomitant]
     Active Substance: LEVOTHYROXINE
     Dosage: 88 ?G, QD
     Route: 048
  11. TIMOLOL. [Concomitant]
     Active Substance: TIMOLOL
     Indication: GLAUCOMA
     Route: 047

REACTIONS (13)
  - Dyspnoea exertional [Unknown]
  - Drug intolerance [Unknown]
  - Dysgraphia [Unknown]
  - Asthma [Unknown]
  - Accidental exposure to product [Unknown]
  - Product dose omission issue [Unknown]
  - Visual impairment [Unknown]
  - Chronic obstructive pulmonary disease [Not Recovered/Not Resolved]
  - Eye irritation [Unknown]
  - Paralysis [Recovered/Resolved]
  - Intraocular pressure increased [Not Recovered/Not Resolved]
  - Ocular hyperaemia [Not Recovered/Not Resolved]
  - Drug hypersensitivity [Unknown]
